FAERS Safety Report 5926004-5 (Version None)
Quarter: 2008Q4

REPORT INFORMATION
  Report Type: 
  Country: None (occurrence: None)
  Receive Date: 20081021
  Receipt Date: 20081013
  Transmission Date: 20090506
  Serious: Yes (Other)
  Sender: FDA-Public Use
  Company Number: NL-PFIZER INC-2008087308

PATIENT

DRUGS (1)
  1. SULFASALAZINE [Suspect]

REACTIONS (1)
  - POLYNEUROPATHY [None]
